FAERS Safety Report 7660082-0 (Version None)
Quarter: 2011Q3

REPORT INFORMATION
  Report Type: 
  Country: None (occurrence: None)
  Receive Date: 20110805
  Receipt Date: 20110722
  Transmission Date: 20111222
  Serious: Yes (Other)
  Sender: FDA-Public Use
  Company Number: PHEH2010US03387

PATIENT
  Sex: Female

DRUGS (9)
  1. FOLIC ACID [Concomitant]
  2. ZELNORM [Suspect]
     Dosage: UNK
     Route: 048
     Dates: start: 20050101
  3. HUMIRA [Concomitant]
  4. NEXIUM [Concomitant]
  5. FOSAMAX [Concomitant]
  6. COLACE [Concomitant]
  7. DIAZIDE [Concomitant]
  8. PRILOSEC [Concomitant]
  9. FLEXERIL [Concomitant]

REACTIONS (19)
  - INSOMNIA [None]
  - OSTEOPOROSIS [None]
  - UPPER RESPIRATORY TRACT INFECTION [None]
  - CHEST PAIN [None]
  - JOINT CONTRACTURE [None]
  - ANAEMIA [None]
  - WEIGHT INCREASED [None]
  - RHEUMATOID ARTHRITIS [None]
  - INJURY [None]
  - PRODUCTIVE COUGH [None]
  - RHINITIS [None]
  - SINUSITIS [None]
  - ARTHRALGIA [None]
  - GASTROOESOPHAGEAL REFLUX DISEASE [None]
  - CONSTIPATION [None]
  - ARTHRITIS [None]
  - HYPOKALAEMIA [None]
  - MUSCLE SPASMS [None]
  - NAUSEA [None]
